FAERS Safety Report 10505068 (Version 4)
Quarter: 2014Q4

REPORT INFORMATION
  Report Type: Spontaneous
  Country: JP (occurrence: JP)
  Receive Date: 20141008
  Receipt Date: 20141113
  Transmission Date: 20150528
  Serious: Yes (Hospitalization)
  Sender: FDA-Public Use
  Company Number: JP-SA-2014SA129137

PATIENT
  Age: 28 Year
  Sex: Female
  Weight: 53.6 kg

DRUGS (5)
  1. APIDRA SOLOSTAR [Suspect]
     Active Substance: INSULIN GLULISINE
     Indication: FULMINANT TYPE 1 DIABETES MELLITUS
     Dosage: DOSE: 18 UNITA A DAY (6-6-6) DOSE:18 UNIT(S)
     Route: 058
     Dates: start: 20140911
  2. SOLOSTAR [Concomitant]
     Active Substance: DEVICE
  3. TRESIBA [Suspect]
     Active Substance: INSULIN DEGLUDEC
     Indication: FULMINANT TYPE 1 DIABETES MELLITUS
     Dosage: DOSE:6 UNIT(S)
     Route: 065
     Dates: start: 20140911
  4. APIDRA SOLOSTAR [Suspect]
     Active Substance: INSULIN GLULISINE
     Indication: FULMINANT TYPE 1 DIABETES MELLITUS
     Dosage: 24 - 44 UNITS/DAY
     Route: 058
     Dates: end: 20140916
  5. TRESIBA [Suspect]
     Active Substance: INSULIN DEGLUDEC
     Indication: FULMINANT TYPE 1 DIABETES MELLITUS
     Dosage: 6 - 12 UNITS QD
     Route: 065
     Dates: end: 20140916

REACTIONS (3)
  - Aspartate aminotransferase increased [Recovering/Resolving]
  - Alanine aminotransferase increased [Recovering/Resolving]
  - Hepatic function abnormal [Recovering/Resolving]

NARRATIVE: CASE EVENT DATE: 20140911
